FAERS Safety Report 7907064-9 (Version None)
Quarter: 2011Q4

REPORT INFORMATION
  Report Type: 
  Country: None (occurrence: None)
  Receive Date: 20111109
  Receipt Date: 20111109
  Transmission Date: 20120403
  Serious: Yes (Hospitalization)
  Sender: FDA-Public Use
  Company Number: None

PATIENT
  Sex: Male

DRUGS (1)
  1. ZELBORAF [Suspect]
     Indication: MALIGNANT MELANOMA
     Dosage: 4 TABS - 960 MG BID PO
     Route: 048
     Dates: start: 20110914, end: 20111001

REACTIONS (4)
  - MYOCARDIAL INFARCTION [None]
  - ASTHENIA [None]
  - HYPERHIDROSIS [None]
  - GASTRITIS EROSIVE [None]
